FAERS Safety Report 4927693-4 (Version None)
Quarter: 2006Q1

REPORT INFORMATION
  Report Type: 
  Country: None (occurrence: None)
  Receive Date: 20060228
  Receipt Date: 20060220
  Transmission Date: 20060701
  Serious: Yes (Hospitalization)
  Sender: FDA-Public Use
  Company Number: US-MERCK-0602USA05090

PATIENT
  Age: 50 Year
  Sex: Male
  Weight: 89 kg

DRUGS (15)
  1. VIOXX [Suspect]
     Indication: ARTHRITIS
     Route: 048
     Dates: start: 20020101, end: 20030101
  2. VIOXX [Suspect]
     Route: 048
     Dates: start: 20020101, end: 20030101
  3. VIOXX [Suspect]
     Route: 065
     Dates: start: 20000101, end: 20030101
  4. VIOXX [Suspect]
     Indication: MYELOPATHY
     Route: 048
     Dates: start: 20020101, end: 20030101
  5. VIOXX [Suspect]
     Route: 048
     Dates: start: 20020101, end: 20030101
  6. VIOXX [Suspect]
     Route: 065
     Dates: start: 20000101, end: 20030101
  7. ASPIRIN [Concomitant]
     Route: 065
     Dates: start: 20020101, end: 20030101
  8. BEXTRA [Concomitant]
     Route: 065
     Dates: start: 20000101, end: 20030101
  9. ACETAMINOPHEN [Concomitant]
     Route: 065
     Dates: start: 20000101, end: 20030101
  10. CELEBREX [Concomitant]
     Route: 065
     Dates: start: 20000101, end: 20030101
  11. NAPROXEN [Concomitant]
     Route: 065
     Dates: start: 20000101, end: 20050101
  12. METOPROLOL [Concomitant]
     Route: 065
     Dates: start: 19950101
  13. VASOTEC RPD [Concomitant]
     Route: 065
     Dates: start: 19950101
  14. ASPIRIN [Concomitant]
     Route: 065
     Dates: start: 20030101, end: 20050101
  15. [THERAPY UNSPECIFIED] [Concomitant]
     Route: 065
     Dates: start: 20000101, end: 20050101

REACTIONS (4)
  - ABDOMINAL PAIN UPPER [None]
  - HYPERTENSION [None]
  - MYOCARDIAL INFARCTION [None]
  - NAUSEA [None]
